FAERS Safety Report 20822820 (Version 1)
Quarter: 2022Q2

REPORT INFORMATION
  Report Type: Report from Study
  Country: HT (occurrence: HT)
  Receive Date: 20220512
  Receipt Date: 20220512
  Transmission Date: 20220721
  Serious: Yes (Other)
  Sender: FDA-Public Use
  Company Number: HT-GILEAD-2022-0574425

PATIENT
  Age: 39 Year
  Sex: Female
  Weight: 57.3 kg

DRUGS (5)
  1. BICTEGRAVIR\EMTRICITABINE\TENOFOVIR ALAFENAMIDE [Suspect]
     Active Substance: BICTEGRAVIR\EMTRICITABINE\TENOFOVIR ALAFENAMIDE
     Indication: HIV infection
     Dosage: 1 DOSAGE FORM, QD
     Route: 065
     Dates: start: 20210908, end: 20220309
  2. DOLUTEGRAVIR\LAMIVUDINE\TENOFOVIR DISOPROXIL FUMARATE [Concomitant]
     Active Substance: DOLUTEGRAVIR\LAMIVUDINE\TENOFOVIR DISOPROXIL FUMARATE
     Indication: HIV infection
     Dosage: UNK
     Dates: start: 20220309
  3. IRON\VITAMINS NOS [Concomitant]
     Active Substance: IRON\VITAMINS
     Indication: Supplementation therapy
     Dosage: UNK
     Dates: start: 20210908, end: 20220502
  4. IRON\VITAMINS NOS [Concomitant]
     Active Substance: IRON\VITAMINS
     Indication: Prophylaxis
  5. PROGESTERONE [Concomitant]
     Active Substance: PROGESTERONE
     Indication: Pregnancy
     Dosage: UNK
     Dates: start: 20220331, end: 20220429

REACTIONS (2)
  - Abortion missed [Unknown]
  - Maternal exposure during pregnancy [Recovered/Resolved]

NARRATIVE: CASE EVENT DATE: 20220213
